FAERS Safety Report 11335479 (Version 1)
Quarter: 2015Q3

REPORT INFORMATION
  Report Type: Spontaneous
  Country: US (occurrence: None)
  Receive Date: 20150731
  Receipt Date: 20150731
  Transmission Date: 20151125
  Serious: Yes (Other)
  Sender: FDA-Public Use
  Company Number: None

PATIENT
  Age: 46 Year
  Sex: Male

DRUGS (1)
  1. DEXANABINOL [Suspect]
     Active Substance: DEXANABINOL

REACTIONS (6)
  - Dysstasia [None]
  - Bladder disorder [None]
  - Somnolence [None]
  - Unresponsive to stimuli [None]
  - Incontinence [None]
  - Mental impairment [None]

NARRATIVE: CASE EVENT DATE: 20150514
